FAERS Safety Report 10939981 (Version 1)
Quarter: 2015Q1

REPORT INFORMATION
  Report Type: Spontaneous
  Country: US (occurrence: None)
  Receive Date: 20150212
  Receipt Date: 20150212
  Transmission Date: 20150721
  Serious: No
  Sender: FDA-Public Use
  Company Number: TPA2011A03324

PATIENT
  Age: 55 Year
  Sex: Male
  Weight: 82.56 kg

DRUGS (1)
  1. ULORIC [Suspect]
     Active Substance: FEBUXOSTAT
     Indication: GOUT
     Dosage: 40 MG- 10MG (1/4 TABLET)
     Route: 048
     Dates: start: 201104

REACTIONS (3)
  - Blood pressure increased [None]
  - Blood glucose increased [None]
  - C-reactive protein increased [None]

NARRATIVE: CASE EVENT DATE: 2011
